FAERS Safety Report 5474874-X (Version None)
Quarter: 2007Q3

REPORT INFORMATION
  Report Type: 
  Country: None (occurrence: None)
  Receive Date: 20070928
  Receipt Date: 20070920
  Transmission Date: 20080115
  Serious: Yes (Death)
  Sender: FDA-Public Use
  Company Number: 2007-03180

PATIENT
  Age: 70 Year
  Sex: Female
  Weight: 48 kg

DRUGS (4)
  1. VELCADE [Suspect]
     Indication: MULTIPLE MYELOMA
     Dosage: 1.30 MG/M2, INTRAVENOUS
     Route: 042
     Dates: start: 20070108, end: 20070306
  2. DEXAMETHASONE 0.5MG TAB [Concomitant]
  3. FORLAX (MACROGOL) [Concomitant]
  4. LYTOS (CLODRONATE DISODIUM) [Concomitant]

REACTIONS (1)
  - DEATH [None]
